FAERS Safety Report 6668587-6 (Version None)
Quarter: 2010Q2

REPORT INFORMATION
  Report Type: 
  Country: None (occurrence: None)
  Receive Date: 20100406
  Receipt Date: 20100331
  Transmission Date: 20101027
  Serious: Yes (Other)
  Sender: FDA-Public Use
  Company Number: FR-BRISTOL-MYERS SQUIBB COMPANY-14865679

PATIENT
  Age: 87 Year
  Sex: Male
  Weight: 86 kg

DRUGS (13)
  1. COAPROVEL FILM-COATED TABS 300/12.5 MG [Suspect]
     Indication: HYPERTENSION
     Dosage: 1 DF= 1 TABS
     Route: 048
     Dates: start: 20081208, end: 20091119
  2. APROVEL [Suspect]
     Indication: HYPERTENSION
     Dates: start: 20091120
  3. METFORMIN [Concomitant]
     Indication: TYPE 2 DIABETES MELLITUS
     Route: 048
     Dates: start: 20051130
  4. JANUVIA [Concomitant]
     Indication: TYPE 2 DIABETES MELLITUS
     Route: 048
     Dates: start: 20090314
  5. ICAZ [Concomitant]
     Indication: HYPERTENSION
     Route: 048
  6. PLAVIX [Concomitant]
     Indication: THROMBOSIS PROPHYLAXIS
     Route: 048
     Dates: start: 20050801
  7. TEMERIT [Concomitant]
     Indication: HYPERTENSION
     Route: 048
  8. EUPRESSYL [Concomitant]
     Indication: HYPERTENSION
     Route: 048
  9. BIPERIDYS [Concomitant]
  10. OMEPRAZOLE [Concomitant]
  11. NOVONORM [Concomitant]
     Indication: TYPE 2 DIABETES MELLITUS
     Route: 048
     Dates: start: 20050728
  12. ZOLPIDEM [Concomitant]
     Indication: INSOMNIA
     Route: 048
     Dates: start: 20050728
  13. LOPERAMIDE [Concomitant]
     Indication: DIARRHOEA
     Route: 048
     Dates: start: 20090611

REACTIONS (2)
  - DIZZINESS [None]
  - VISUAL IMPAIRMENT [None]
